FAERS Safety Report 8795226 (Version 2)
Quarter: 2015Q2

REPORT INFORMATION
  Report Type: Report from Study
  Country: US (occurrence: US)
  Receive Date: 20120917
  Receipt Date: 20150625
  Transmission Date: 20150821
  Serious: Yes (Death)
  Sender: FDA-Public Use
  Company Number: US-ROCHE-1129259

PATIENT
  Sex: Female
  Weight: 95 kg

DRUGS (2)
  1. AVASTIN [Suspect]
     Active Substance: BEVACIZUMAB
     Indication: RENAL CANCER
     Dosage: THERAPY RECEIVED ON 09/AUG/2004, 23/AUG/2004, 07/SEP/2004, 20/SEP/2004, 04/OCT/2004, 18/OCT/2004, 01
     Route: 042
     Dates: start: 20040728
  2. IRESSA [Concomitant]
     Active Substance: GEFITINIB
     Route: 065
     Dates: start: 20040728

REACTIONS (9)
  - Off label use [Unknown]
  - Localised intraabdominal fluid collection [Unknown]
  - Death [Fatal]
  - Dermatitis acneiform [Unknown]
  - Mediastinal disorder [Unknown]
  - Petechiae [Unknown]
  - Ecchymosis [Unknown]
  - Inguinal hernia [Unknown]
  - Pulmonary mass [Unknown]
